FAERS Safety Report 6271926-1 (Version None)
Quarter: 2009Q3

REPORT INFORMATION
  Report Type: 
  Country: None (occurrence: None)
  Receive Date: 20090713
  Receipt Date: 20090512
  Transmission Date: 20100115
  Serious: No
  Sender: FDA-Public Use
  Company Number: 2009BM000113

PATIENT
  Age: 34 Year
  Sex: Female
  Weight: 63 kg

DRUGS (8)
  1. KUVAN [Suspect]
     Indication: PHENYLKETONURIA
     Dosage: 1300 MG;QD;PO
     Route: 048
     Dates: start: 20090508, end: 20090511
  2. TOPAMAX [Concomitant]
  3. RISPERIDONE [Concomitant]
  4. CARBATROL [Concomitant]
  5. ABILIFY [Concomitant]
  6. CYMBALTA [Concomitant]
  7. MULTI-VITAMIN [Concomitant]
  8. BIOTIN [Concomitant]

REACTIONS (4)
  - DIZZINESS [None]
  - LACRIMATION INCREASED [None]
  - SPEECH DISORDER [None]
  - TREMOR [None]
